FAERS Safety Report 6842999-X (Version None)
Quarter: 2010Q3

REPORT INFORMATION
  Report Type: 
  Country: None (occurrence: None)
  Receive Date: 20100714
  Receipt Date: 20071017
  Transmission Date: 20110219
  Serious: No
  Sender: FDA-Public Use
  Company Number: US-PFIZER INC-2007066954

PATIENT
  Sex: Female
  Weight: 60.8 kg

DRUGS (8)
  1. CHANTIX [Suspect]
     Indication: SMOKING CESSATION THERAPY
     Dates: start: 20070701, end: 20070810
  2. VALSARTAN [Concomitant]
     Indication: HYPERTENSION
  3. MULTI-VITAMINS [Concomitant]
  4. PLAVIX [Concomitant]
  5. NORVASC [Concomitant]
     Indication: HYPERTENSION
  6. REQUIP [Concomitant]
     Indication: RESTLESS LEGS SYNDROME
  7. CITALOPRAM HYDROBROMIDE [Concomitant]
     Indication: DEPRESSION
  8. IRON [Concomitant]

REACTIONS (4)
  - ABDOMINAL DISTENSION [None]
  - FATIGUE [None]
  - NAUSEA [None]
  - VOMITING [None]
